FAERS Safety Report 23863452 (Version 4)
Quarter: 2024Q2

REPORT INFORMATION
  Report Type: Spontaneous
  Country: DE (occurrence: DE)
  Receive Date: 20240516
  Receipt Date: 20240605
  Transmission Date: 20240716
  Serious: Yes (Other)
  Sender: FDA-Public Use
  Company Number: DE-SANDOZ-SDZ2024DE045917

PATIENT
  Age: 41 Year
  Sex: Male

DRUGS (4)
  1. MOMETASONE FUROATE [Suspect]
     Active Substance: MOMETASONE FUROATE
     Indication: Cutaneous T-cell lymphoma
     Dosage: LESIONAL USE, QD (TREATED ONCE DAILY) (MORE THAN 20 YEARS)
     Route: 061
  2. MOGAMULIZUMAB [Concomitant]
     Active Substance: MOGAMULIZUMAB
     Indication: Cutaneous T-cell lymphoma
     Dosage: 12 CYCLES
     Route: 042
     Dates: start: 202009, end: 202102
  3. MOGAMULIZUMAB [Concomitant]
     Active Substance: MOGAMULIZUMAB
     Indication: Disease progression
  4. GEMCITABINE [Concomitant]
     Active Substance: GEMCITABINE
     Indication: Cutaneous T-cell lymphoma
     Dosage: LOW-DOSE
     Route: 065

REACTIONS (1)
  - Tertiary adrenal insufficiency [Unknown]
